FAERS Safety Report 14339181 (Version 6)
Quarter: 2024Q2

REPORT INFORMATION
  Report Type: Spontaneous
  Country: FR (occurrence: FR)
  Receive Date: 20171230
  Receipt Date: 20240403
  Transmission Date: 20240715
  Serious: Yes (Life-Threatening, Hospitalization, Other)
  Sender: FDA-Public Use
  Company Number: FR-AUROBINDO-AUR-APL-2017-36225

PATIENT
  Age: 51 Year
  Sex: Male
  Weight: 89 kg

DRUGS (24)
  1. DIAZEPAM [Interacting]
     Active Substance: DIAZEPAM
     Indication: Product used for unknown indication
     Dosage: 6 MILLIGRAM
     Route: 048
  2. DIAZEPAM [Interacting]
     Active Substance: DIAZEPAM
     Dosage: 2 MILLIGRAM
     Route: 048
  3. PREGABALIN [Interacting]
     Active Substance: PREGABALIN
     Indication: Product used for unknown indication
     Dosage: 200 MG, TWO TIMES A DAY
     Route: 048
  4. PREGABALIN [Interacting]
     Active Substance: PREGABALIN
     Dosage: 400 MILLIGRAM, (2 X 200 MG)
     Route: 048
  5. FLUCONAZOLE [Interacting]
     Active Substance: FLUCONAZOLE
     Indication: Urinary tract infection fungal
     Dosage: 800 MILLIGRAM
     Route: 042
     Dates: start: 20160421
  6. FLUCONAZOLE [Interacting]
     Active Substance: FLUCONAZOLE
     Dosage: 800 MILLIGRAM
     Route: 042
     Dates: start: 20160422
  7. FLUCONAZOLE [Interacting]
     Active Substance: FLUCONAZOLE
     Dosage: 400 MILLIGRAM, DAILY
     Route: 042
     Dates: start: 20160423
  8. FLUCONAZOLE [Interacting]
     Active Substance: FLUCONAZOLE
     Dosage: UNK
     Route: 042
     Dates: start: 20160422
  9. OXYCODONE [Interacting]
     Active Substance: OXYCODONE\OXYCODONE HYDROCHLORIDE
     Indication: Pain
     Dosage: UNK, TWO TIMES A DAY
     Route: 048
     Dates: start: 20160412
  10. OXYCODONE [Interacting]
     Active Substance: OXYCODONE\OXYCODONE HYDROCHLORIDE
     Indication: Procedural pain
     Dosage: 60 MILLIGRAM, TWO TIMES A DAY
     Route: 065
     Dates: start: 20160412
  11. OXYCODONE [Interacting]
     Active Substance: OXYCODONE\OXYCODONE HYDROCHLORIDE
     Dosage: 10 MILLIGRAM, ONCE A DAY (10 MG, IMMEDIATE RELEASE EVERY 24 HOURS,)
     Route: 048
     Dates: start: 20160412
  12. OXYCODONE [Interacting]
     Active Substance: OXYCODONE\OXYCODONE HYDROCHLORIDE
     Dosage: 10 MILLIGRAM,(4 HOURS)
     Route: 048
     Dates: start: 20160412
  13. OXYCODONE [Interacting]
     Active Substance: OXYCODONE\OXYCODONE HYDROCHLORIDE
     Dosage: 120 MILLIGRAM, (60 MG, BID)
     Route: 048
     Dates: start: 20160421
  14. OXYCODONE [Interacting]
     Active Substance: OXYCODONE\OXYCODONE HYDROCHLORIDE
     Dosage: 120 MILLIGRAM, (60 MG, BID)
     Route: 048
     Dates: start: 20160423, end: 20160423
  15. OXYCODONE HYDROCHLORIDE [Interacting]
     Active Substance: OXYCODONE HYDROCHLORIDE
     Indication: Pain
     Dosage: UNK, (4HRS)
     Route: 048
     Dates: start: 20160412
  16. OXYCODONE HYDROCHLORIDE [Interacting]
     Active Substance: OXYCODONE HYDROCHLORIDE
     Dosage: 40 MILLIGRAM, DAILY
     Route: 048
     Dates: start: 20160421
  17. OXYCODONE HYDROCHLORIDE [Interacting]
     Active Substance: OXYCODONE HYDROCHLORIDE
     Dosage: 30 MILLIGRAM, DAILY
     Route: 048
     Dates: start: 20160422
  18. OXYCODONE HYDROCHLORIDE [Interacting]
     Active Substance: OXYCODONE HYDROCHLORIDE
     Dosage: 20 MILLIGRAM, DAILY, (10 MG, BID)
     Route: 048
     Dates: start: 20160423
  19. OXYCODONE HYDROCHLORIDE [Interacting]
     Active Substance: OXYCODONE HYDROCHLORIDE
     Dosage: 10 MILLIGRAM, DAILY
     Route: 048
     Dates: start: 20160424
  20. CLOMIPRAMINE [Concomitant]
     Active Substance: CLOMIPRAMINE
     Indication: Depression
     Dosage: 75 MILLIGRAM
     Route: 048
  21. CLOMIPRAMINE [Concomitant]
     Active Substance: CLOMIPRAMINE
     Dosage: 112.5 MILLIGRAM, DAILY
     Route: 048
  22. ESOMEPRAZOLE [Concomitant]
     Active Substance: ESOMEPRAZOLE
     Indication: Sleep apnoea syndrome
     Dosage: 40 MILLIGRAM
     Route: 048
  23. ACETAMINOPHEN [Concomitant]
     Active Substance: ACETAMINOPHEN
     Indication: Product used for unknown indication
     Dosage: 3 GRAM, ONCE A DAY, (1 G, TID)
     Route: 048
  24. CYAMEMAZINE [Concomitant]
     Active Substance: CYAMEMAZINE
     Indication: Product used for unknown indication
     Dosage: 15 DROP, DAILY
     Route: 065

REACTIONS (3)
  - Respiratory depression [Recovered/Resolved]
  - Respiratory rate decreased [Recovering/Resolving]
  - Drug interaction [Recovering/Resolving]

NARRATIVE: CASE EVENT DATE: 20160423
